FAERS Safety Report 24672681 (Version 1)
Quarter: 2024Q4

REPORT INFORMATION
  Report Type: Spontaneous
  Country: US (occurrence: US)
  Receive Date: 20241127
  Receipt Date: 20241127
  Transmission Date: 20250114
  Serious: Yes (Death, Life-Threatening, Other)
  Sender: AUROBINDO
  Company Number: US-MLMSERVICE-20241111-PI251887-00306-4

PATIENT
  Age: 54 Year
  Sex: Female

DRUGS (4)
  1. CYCLOPHOSPHAMIDE [Suspect]
     Active Substance: CYCLOPHOSPHAMIDE
     Indication: Prophylaxis against graft versus host disease
     Dosage: UNK
     Route: 065
     Dates: start: 20211120, end: 20211121
  2. MYCOPHENOLIC ACID [Suspect]
     Active Substance: MYCOPHENOLIC ACID
     Indication: Prophylaxis against graft versus host disease
     Dosage: 15 MILLIGRAM/KILOGRAM, 3 TIMES A DAY
     Route: 065
     Dates: start: 20211122, end: 20211221
  3. TACROLIMUS [Suspect]
     Active Substance: TACROLIMUS
     Indication: Immunosuppressant drug therapy
     Dosage: UNK
     Route: 065
     Dates: start: 1999, end: 2015
  4. TACROLIMUS [Suspect]
     Active Substance: TACROLIMUS
     Indication: Prophylaxis against transplant rejection
     Dosage: DECREASED
     Route: 065
     Dates: start: 2015, end: 2022

REACTIONS (3)
  - Myelodysplastic syndrome [Fatal]
  - Acute myeloid leukaemia recurrent [Fatal]
  - Disease recurrence [Fatal]

NARRATIVE: CASE EVENT DATE: 20220101
